FAERS Safety Report 12721185 (Version 2)
Quarter: 2016Q3

REPORT INFORMATION
  Report Type: Spontaneous
  Country: US (occurrence: US)
  Receive Date: 20160907
  Receipt Date: 20160912
  Transmission Date: 20161109
  Serious: Yes (Other)
  Sender: FDA-Public Use
  Company Number: US-PFIZER INC-2016417124

PATIENT
  Age: 82 Year
  Sex: Female
  Weight: 63.5 kg

DRUGS (8)
  1. DOFETILIDE. [Suspect]
     Active Substance: DOFETILIDE
     Indication: ATRIAL FIBRILLATION
     Dosage: 250 UG, 2X/DAY
     Route: 048
     Dates: start: 20160815, end: 20160902
  2. PREDNISONE. [Concomitant]
     Active Substance: PREDNISONE
     Indication: TEMPORAL ARTERITIS
     Dosage: 5 MG, 1X/DAY
     Route: 048
     Dates: start: 2011
  3. STATIN [Concomitant]
     Active Substance: UNSPECIFIED INGREDIENT
     Dosage: UNK
  4. CALCIUM CITRATE [Concomitant]
     Active Substance: CALCIUM CITRATE
     Dosage: 1 DF, 1X/DAY (ONE IN THE MORNING)
  5. VITAMIN B3 [Concomitant]
     Active Substance: NIACIN
     Dosage: 2000 IU, 1X/DAY (ONE IN THE MORNING)
  6. LEVOTHYROXINE. [Concomitant]
     Active Substance: LEVOTHYROXINE
     Indication: THYROID DISORDER
     Dosage: 50 UG, UNK
  7. ZETIA [Concomitant]
     Active Substance: EZETIMIBE
     Indication: BLOOD CHOLESTEROL ABNORMAL
     Dosage: 10 UG, UNK
  8. WARFARIN [Concomitant]
     Active Substance: WARFARIN
     Indication: ATRIAL FIBRILLATION
     Dosage: 3 MG, MONTHLY

REACTIONS (6)
  - Drug ineffective [Unknown]
  - Dyspepsia [Recovering/Resolving]
  - Anxiety [Unknown]
  - Blood pressure increased [Recovered/Resolved]
  - Chest pain [Recovered/Resolved]
  - Eructation [Recovering/Resolving]

NARRATIVE: CASE EVENT DATE: 20160830
